FAERS Safety Report 7544474-6 (Version None)
Quarter: 2011Q2

REPORT INFORMATION
  Report Type: 
  Country: None (occurrence: None)
  Receive Date: 20110613
  Receipt Date: 20110509
  Transmission Date: 20111010
  Serious: Yes (Hospitalization)
  Sender: FDA-Public Use
  Company Number: PHHO2011FR08142

PATIENT
  Sex: Male
  Weight: 80 kg

DRUGS (13)
  1. CELLCEPT [Suspect]
     Indication: RENAL TRANSPLANT
     Dosage: 500 MG
     Route: 048
     Dates: start: 20110427
  2. BACTRIM [Concomitant]
     Dosage: UNK
     Dates: start: 20110427
  3. DEBRIDAT [Concomitant]
     Dosage: UNK
     Dates: start: 20110428
  4. SIMULECT [Concomitant]
     Dosage: 20 MG, (DAY 4)
     Route: 042
     Dates: start: 20110430, end: 20110430
  5. ZANTAC [Concomitant]
     Dosage: 150 MG
     Route: 048
     Dates: start: 20110427
  6. PREDNISONE [Suspect]
     Indication: RENAL TRANSPLANT
     Dosage: 20 MG
     Route: 048
     Dates: start: 20110427
  7. SIMULECT [Concomitant]
     Indication: RENAL TRANSPLANT
     Dosage: 20 MG, (DAY 0)
     Route: 042
     Dates: start: 20110426, end: 20110426
  8. FUNGIZONE [Concomitant]
     Dosage: UNK
     Dates: start: 20110428
  9. FORLAX [Concomitant]
     Dosage: UNK
     Dates: start: 20110428
  10. VITAMIN B1 AND B6 [Concomitant]
     Dosage: UNK
     Dates: start: 20110501
  11. NEORAL [Suspect]
     Indication: RENAL TRANSPLANT
     Dosage: 150 MG
     Route: 048
     Dates: start: 20110428
  12. LASIX [Concomitant]
     Dosage: UNK
     Dates: start: 20110426
  13. IMOVANE [Concomitant]
     Dosage: UNK
     Dates: start: 20110502

REACTIONS (3)
  - RENAL ARTERITIS [None]
  - ARTERITIS [None]
  - DIALYSIS [None]
